FAERS Safety Report 9434799 (Version 2)
Quarter: 2013Q4

REPORT INFORMATION
  Report Type: Spontaneous
  Country: GB (occurrence: GB)
  Receive Date: 20130801
  Receipt Date: 20131119
  Transmission Date: 20140711
  Serious: Yes (Congenital Anomaly, Other)
  Sender: FDA-Public Use
  Company Number: GB-PFIZER INC-2013220741

PATIENT
  Sex: 0

DRUGS (2)
  1. GABAPENTIN [Suspect]
     Indication: DIABETIC NEUROPATHY
     Route: 064
  2. INSULIN [Concomitant]
     Indication: DIABETES MELLITUS
     Route: 064

REACTIONS (7)
  - Maternal exposure during pregnancy [Unknown]
  - Caudal regression syndrome [Unknown]
  - Congenital anomaly [Unknown]
  - Cerebral ventricle dilatation [Unknown]
  - Brain malformation [Unknown]
  - Limb deformity [Unknown]
  - Diabetic foetopathy [Unknown]
